FAERS Safety Report 18154111 (Version 2)
Quarter: 2020Q4

REPORT INFORMATION
  Report Type: Spontaneous
  Country: KR (occurrence: KR)
  Receive Date: 20200816
  Receipt Date: 20201015
  Transmission Date: 20210113
  Serious: Yes (Hospitalization, Other)
  Sender: FDA-Public Use
  Company Number: KR-PFIZER INC-2020313682

PATIENT
  Age: 5 Year
  Sex: Male

DRUGS (2)
  1. ATORVASTATIN CALCIUM. [Suspect]
     Active Substance: ATORVASTATIN CALCIUM
     Indication: LIPIDS ABNORMAL
     Dosage: 5 MG, 2X/DAY
     Route: 048
     Dates: start: 20190925, end: 2019
  2. ATORVASTATIN CALCIUM. [Suspect]
     Active Substance: ATORVASTATIN CALCIUM
     Dosage: 10 MG, 2X/DAY
     Route: 048
     Dates: start: 20191226, end: 20200117

REACTIONS (6)
  - Vomiting [Unknown]
  - Narcolepsy [Unknown]
  - Drug ineffective [Unknown]
  - Liver injury [Recovered/Resolved]
  - Product use issue [Unknown]
  - Off label use [Unknown]

NARRATIVE: CASE EVENT DATE: 20190925
